FAERS Safety Report 4501835-7 (Version None)
Quarter: 2004Q4

REPORT INFORMATION
  Report Type: 
  Country: None (occurrence: None)
  Receive Date: 20041115
  Receipt Date: 20041115
  Transmission Date: 20050328
  Serious: Yes (Hospitalization)
  Sender: FDA-Public Use
  Company Number: None

PATIENT
  Age: 80 Year
  Sex: Male
  Weight: 84.6 kg

DRUGS (13)
  1. METOPROLOL [Suspect]
  2. ASPIRIN [Concomitant]
  3. CLOPIDOGREL BISULFATE [Concomitant]
  4. NIACIN EXTENDED RELEASE [Concomitant]
  5. GOSERELING ACETATE [Concomitant]
  6. AMLODIPINE [Concomitant]
  7. DOCUSATE [Concomitant]
  8. LEVOTHYROXINE SODIUM [Concomitant]
  9. FLUTAMIDE [Concomitant]
  10. KETOCONAZOLE 2% CREAM [Concomitant]
  11. LIDOCAINE HCL 5% OINT [Concomitant]
  12. QUININE [Concomitant]
  13. VOSOL HC OTIC DROPS [Concomitant]

REACTIONS (4)
  - DIZZINESS [None]
  - NAUSEA [None]
  - SYNCOPE [None]
  - VOMITING [None]
